FAERS Safety Report 8061002-X (Version None)
Quarter: 2012Q1

REPORT INFORMATION
  Report Type: 
  Country: None (occurrence: None)
  Receive Date: 20120120
  Receipt Date: 20120111
  Transmission Date: 20120608
  Serious: Yes (Hospitalization)
  Sender: FDA-Public Use
  Company Number: US-ASTRAZENECA-2012SE01500

PATIENT
  Age: 80 Year
  Sex: Female

DRUGS (3)
  1. CRESTOR [Suspect]
     Indication: BLOOD CHOLESTEROL INCREASED
     Route: 048
  2. PLAVIX [Concomitant]
     Indication: ANTICOAGULANT THERAPY
  3. CRESTOR [Suspect]
     Route: 048

REACTIONS (4)
  - PAIN IN EXTREMITY [None]
  - MYALGIA [None]
  - ABASIA [None]
  - MUSCULAR WEAKNESS [None]
